FAERS Safety Report 22325851 (Version 1)
Quarter: 2023Q2

REPORT INFORMATION
  Report Type: Spontaneous
  Country: US (occurrence: US)
  Receive Date: 20230516
  Receipt Date: 20230516
  Transmission Date: 20230721
  Serious: No
  Sender: FDA-Public Use
  Company Number: US-MYLANLABS-2023M1044596

PATIENT
  Sex: Female

DRUGS (3)
  1. EFFEXOR [Interacting]
     Active Substance: VENLAFAXINE HYDROCHLORIDE
     Indication: Product used for unknown indication
     Dosage: UNK
     Route: 065
  2. PREDNISONE [Interacting]
     Active Substance: PREDNISONE
     Indication: Product used for unknown indication
     Dosage: UNK
     Route: 065
  3. CORTICOTROPIN [Interacting]
     Active Substance: CORTICOTROPIN
     Indication: Product used for unknown indication
     Dosage: 80 INTERNATIONAL UNIT, 2 TIMES A WEEK
     Route: 065

REACTIONS (3)
  - Agitation [Unknown]
  - Nervousness [Unknown]
  - Drug interaction [Unknown]
